FAERS Safety Report 7603594-8 (Version None)
Quarter: 2011Q3

REPORT INFORMATION
  Report Type: 
  Country: None (occurrence: None)
  Receive Date: 20110712
  Receipt Date: 20110707
  Transmission Date: 20111222
  Serious: Yes (Other)
  Sender: FDA-Public Use
  Company Number: US-AMGEN-USASP2011034597

PATIENT
  Sex: Female
  Weight: 69.388 kg

DRUGS (12)
  1. NIACIN [Concomitant]
  2. LOSARTAN POTASSIUM [Concomitant]
  3. VITAMIN B12                        /00056201/ [Concomitant]
  4. CETIRIZINE HCL [Concomitant]
  5. ATIVAN [Concomitant]
  6. CORTICOSTEROIDS [Concomitant]
  7. FUROSEMIDE [Concomitant]
  8. MUCINEX [Concomitant]
  9. NPLATE [Suspect]
     Indication: IDIOPATHIC THROMBOCYTOPENIC PURPURA
     Dates: start: 20110615
  10. POTASSIUM CHLORIDE [Concomitant]
  11. RISEDRONATE SODIUM [Concomitant]
  12. VITAMIN D [Concomitant]

REACTIONS (2)
  - TINEA INFECTION [None]
  - OVARIAN MASS [None]
